FAERS Safety Report 9846231 (Version 1)
Quarter: 2013Q4

REPORT INFORMATION
  Report Type: Spontaneous
  Country: US (occurrence: None)
  Receive Date: 20131223
  Receipt Date: 20131223
  Transmission Date: 20140711
  Serious: No
  Sender: FDA-Public Use
  Company Number: CABO-13003243

PATIENT
  Age: 81 Year
  Sex: Male

DRUGS (8)
  1. COMETRIQ [Suspect]
     Indication: THYROID CANCER
     Route: 048
     Dates: start: 20130830, end: 20130917
  2. LOVENOX (ENOXAPARIN SODIUM) [Concomitant]
  3. LEVOTHYROXINE (LEVOTHYROXINE) [Concomitant]
  4. MINOCYCLINE (MINOCYCLINE) [Suspect]
  5. MULTIVITAMIN (VITAMINS NOS) [Concomitant]
  6. PENTASA (MESALAZINE) [Concomitant]
  7. BUDESONIDE (BUDESONIDE) [Concomitant]
  8. ZITHROMAX Z-PAK (AZITHROMYCIN) [Concomitant]

REACTIONS (8)
  - Bronchitis [None]
  - Diarrhoea [None]
  - Dehydration [None]
  - Headache [None]
  - Dysgeusia [None]
  - Glossodynia [None]
  - Abdominal discomfort [None]
  - Vomiting [None]
